FAERS Safety Report 4348298-2 (Version None)
Quarter: 2004Q2

REPORT INFORMATION
  Report Type: 
  Country: None (occurrence: None)
  Receive Date: 20040422
  Receipt Date: 20040419
  Transmission Date: 20050107
  Serious: Yes (Death)
  Sender: FDA-Public Use
  Company Number: 200411127GDS

PATIENT
  Age: 90 Year
  Sex: Female

DRUGS (6)
  1. ASPIRIN [Suspect]
     Indication: PROPHYLAXIS
     Dosage: 100 MG, QD, ORAL
     Route: 048
     Dates: end: 20040331
  2. INDERAL [Concomitant]
  3. QUINAPRIL HCL [Concomitant]
  4. PRAVASTATIN SODIUM [Concomitant]
  5. DUPHALAC [Concomitant]
  6. ACCURO [Concomitant]

REACTIONS (2)
  - BLOOD PRESSURE INCREASED [None]
  - CEREBRAL HAEMORRHAGE [None]
